FAERS Safety Report 4424202-3 (Version None)
Quarter: 2004Q3

REPORT INFORMATION
  Report Type: 
  Country: None (occurrence: None)
  Receive Date: 20040812
  Receipt Date: 20040806
  Transmission Date: 20050211
  Serious: Yes (Other)
  Sender: FDA-Public Use
  Company Number: 200417827GDDC

PATIENT
  Age: 60 Year
  Sex: Female

DRUGS (8)
  1. LANTUS [Suspect]
     Dosage: DOSE UNIT: UNITS
     Route: 058
     Dates: start: 20040616
  2. PREMPAK-C [Concomitant]
  3. ENALAPRIL MALEATE [Concomitant]
     Route: 048
  4. METFORMIN HCL [Concomitant]
     Route: 048
  5. OXYTETRACYCLINE [Concomitant]
     Route: 048
  6. SIBUTRAMINE [Concomitant]
     Route: 048
  7. ASPIRIN [Concomitant]
     Route: 048
  8. SIMVASTATIN [Concomitant]
     Route: 048

REACTIONS (4)
  - ERYTHEMA [None]
  - FLUSHING [None]
  - HYPERHIDROSIS [None]
  - WEIGHT INCREASED [None]
